FAERS Safety Report 8770699 (Version 5)
Quarter: 2012Q4

REPORT INFORMATION
  Report Type: 
  Country: US (occurrence: US)
  Receive Date: 20120906
  Receipt Date: 20120928
  Transmission Date: 20130627
  Serious: Yes (Hospitalization, Other)
  Sender: FDA-Public Use
  Company Number: US-UCBSA-064207

PATIENT
  Age: 49 Year
  Sex: Female

DRUGS (21)
  1. XYREM [Suspect]
     Indication: CATAPLEXY
     Route: 048
     Dates: start: 20120725, end: 20120813
  2. XYREM [Suspect]
     Indication: NARCOLEPSY
     Route: 048
     Dates: start: 20120725, end: 20120813
  3. XYREM [Suspect]
     Indication: CATAPLEXY
     Dosage: NIGHTLY
     Route: 048
     Dates: start: 20120814, end: 20120814
  4. XYREM [Suspect]
     Indication: NARCOLEPSY
     Dosage: NIGHTLY
     Route: 048
     Dates: start: 20120814, end: 20120814
  5. XYREM [Suspect]
     Indication: CATAPLEXY
     Dosage: TWICE NIGHTLY
     Route: 048
     Dates: start: 20120815, end: 201208
  6. XYREM [Suspect]
     Indication: NARCOLEPSY
     Dosage: TWICE NIGHTLY
     Route: 048
     Dates: start: 20120815, end: 201208
  7. XYREM [Suspect]
     Indication: CATAPLEXY
     Dosage: TWICE NIGHTLY
     Route: 048
     Dates: start: 20120823, end: 20120829
  8. XYREM [Suspect]
     Indication: NARCOLEPSY
     Dosage: TWICE NIGHTLY
     Route: 048
     Dates: start: 20120823, end: 20120829
  9. METHYLPHENIDATE HCL [Suspect]
     Route: 048
  10. HYDROCODONE-ACETAMINOPHEN [Suspect]
  11. BACLOFEN [Suspect]
  12. MELOXICAM [Suspect]
  13. CLONAZEPAM [Suspect]
  14. GABAPENTIN [Suspect]
  15. VITAMIN D3 [Suspect]
  16. ABILIFY [Suspect]
     Indication: BIPOLAR DISORDER
     Dates: end: 201207
  17. ABILIFY [Suspect]
     Indication: BIPOLAR DISORDER
     Dates: start: 201208
  18. PRISTIQ [Suspect]
     Indication: BIPOLAR DISORDER
  19. PRISTIQ [Suspect]
     Indication: BIPOLAR DISORDER
     Dates: end: 20120802
  20. PRISTIQ [Suspect]
     Indication: BIPOLAR DISORDER
     Dates: start: 201208
  21. SIMVASTATIN [Suspect]

REACTIONS (17)
  - Cholelithiasis [Recovered/Resolved]
  - Bile duct obstruction [Recovered/Resolved]
  - Bilirubinuria [Recovered/Resolved]
  - Hepatic enzyme increased [Recovering/Resolving]
  - Suicidal ideation [Recovered/Resolved]
  - Depression [Recovered/Resolved]
  - Aerophagia [Unknown]
  - Eructation [Unknown]
  - Dysphagia [Unknown]
  - Panic attack [Recovered/Resolved]
  - Insomnia [Recovered/Resolved]
  - Nervousness [Recovered/Resolved]
  - Stress [Unknown]
  - Decreased appetite [Unknown]
  - Hyperhidrosis [Recovered/Resolved]
  - Fatigue [Recovered/Resolved]
  - Malaise [Unknown]
